FAERS Safety Report 8164000-0 (Version None)
Quarter: 2012Q1

REPORT INFORMATION
  Report Type: 
  Country: None (occurrence: None)
  Receive Date: 20120224
  Receipt Date: 20120209
  Transmission Date: 20120608
  Serious: Yes (Other)
  Sender: FDA-Public Use
  Company Number: CHPA2012US003038

PATIENT
  Age: 62 Year
  Sex: Female

DRUGS (1)
  1. EXCEDRIN EXTRA STRENGTH TABLETS [Suspect]
     Indication: MIGRAINE
     Dosage: 2 DF, TID
     Route: 048
     Dates: start: 19950101

REACTIONS (5)
  - DRUG DEPENDENCE [None]
  - THERAPEUTIC RESPONSE UNEXPECTED [None]
  - INCORRECT DRUG ADMINISTRATION DURATION [None]
  - BRONCHIECTASIS [None]
  - INCREASED UPPER AIRWAY SECRETION [None]
